FAERS Safety Report 7772606-3 (Version None)
Quarter: 2011Q3

REPORT INFORMATION
  Report Type: 
  Country: None (occurrence: None)
  Receive Date: 20110922
  Receipt Date: 20110324
  Transmission Date: 20111222
  Serious: No
  Sender: FDA-Public Use
  Company Number: US-ASTRAZENECA-2011SE16843

PATIENT
  Age: 43 Year
  Sex: Female
  Weight: 49.9 kg

DRUGS (5)
  1. OXYCONTIN [Concomitant]
     Indication: PAIN
  2. SEROQUEL [Suspect]
     Indication: BIPOLAR I DISORDER
     Dosage: HALF TABLET TWO TIMES A DAY
     Route: 048
     Dates: start: 20100101
  3. IBUPROFEN [Concomitant]
     Indication: PAIN
  4. PERCOCET [Concomitant]
     Indication: PAIN
  5. LORAZEPAM [Concomitant]

REACTIONS (2)
  - CHILLS [None]
  - NASOPHARYNGITIS [None]
